FAERS Safety Report 16542193 (Version 1)
Quarter: 2019Q3

REPORT INFORMATION
  Report Type: Spontaneous
  Country: IT (occurrence: IT)
  Receive Date: 20190708
  Receipt Date: 20190708
  Transmission Date: 20191004
  Serious: Yes (Disabling)
  Sender: FDA-Public Use
  Company Number: IT-ALLERGAN-1927678US

PATIENT
  Sex: Female

DRUGS (7)
  1. TRIATEC [Concomitant]
     Indication: HYPERTENSION
     Route: 048
  2. ASCRIPTIN [Concomitant]
     Active Substance: ASPIRIN
     Route: 048
  3. LIBRADIN [Concomitant]
     Active Substance: BARNIDIPINE HYDROCHLORIDE
     Indication: HYPERTENSION
     Route: 048
  4. OZURDEX [Suspect]
     Active Substance: DEXAMETHASONE
     Dosage: 0.7 MG, SINGLE
     Route: 031
     Dates: start: 20180112, end: 20180112
  5. GLUCOPHAGE [Concomitant]
     Active Substance: METFORMIN HYDROCHLORIDE
     Indication: TYPE 2 DIABETES MELLITUS
     Route: 048
  6. OZURDEX [Suspect]
     Active Substance: DEXAMETHASONE
     Indication: DIABETIC RETINAL OEDEMA
     Dosage: 0.7 MG, SINGLE
     Route: 031
     Dates: start: 20190429, end: 20190429
  7. NOBISTAR [Concomitant]
     Active Substance: NEBIVOLOL HYDROCHLORIDE
     Indication: HYPERTENSION
     Route: 048

REACTIONS (2)
  - Optic ischaemic neuropathy [Not Recovered/Not Resolved]
  - Blindness [Not Recovered/Not Resolved]

NARRATIVE: CASE EVENT DATE: 20190618
